FAERS Safety Report 25338043 (Version 1)
Quarter: 2025Q2

REPORT INFORMATION
  Report Type: Spontaneous
  Country: US (occurrence: US)
  Receive Date: 20250520
  Receipt Date: 20250520
  Transmission Date: 20250717
  Serious: Yes (Death)
  Sender: BOEHRINGER INGELHEIM
  Company Number: US-Komodo Health-a23aa000007f8s2AAA

PATIENT
  Age: 86 Year
  Sex: Male

DRUGS (1)
  1. JARDIANCE [Suspect]
     Active Substance: EMPAGLIFLOZIN
     Indication: Cardiac disorder

REACTIONS (1)
  - Death [Fatal]

NARRATIVE: CASE EVENT DATE: 20250422
